FAERS Safety Report 6611763-9 (Version None)
Quarter: 2010Q1

REPORT INFORMATION
  Report Type: 
  Country: None (occurrence: None)
  Receive Date: 20100303
  Receipt Date: 20100219
  Transmission Date: 20100710
  Serious: No
  Sender: FDA-Public Use
  Company Number: DE-ELI_LILLY_AND_COMPANY-DE201002005791

PATIENT
  Age: 11 Year
  Sex: Male

DRUGS (2)
  1. STRATTERA [Suspect]
     Indication: ATTENTION DEFICIT/HYPERACTIVITY DISORDER
     Dosage: 10 MG, UNKNOWN
     Route: 048
     Dates: start: 20100202, end: 20100205
  2. NOVORAPID [Concomitant]
     Indication: TYPE 2 DIABETES MELLITUS
     Dosage: 100 UU/ML, AS NEEDED VIA INSULIN PUMP
     Route: 058

REACTIONS (3)
  - BLOOD GLUCOSE INCREASED [None]
  - FEELING ABNORMAL [None]
  - GLYCOSYLATED HAEMOGLOBIN INCREASED [None]
